FAERS Safety Report 14227539 (Version 4)
Quarter: 2018Q1

REPORT INFORMATION
  Report Type: Spontaneous
  Country: US (occurrence: US)
  Receive Date: 20171127
  Receipt Date: 20180207
  Transmission Date: 20180508
  Serious: Yes (Hospitalization)
  Sender: FDA-Public Use
  Company Number: US-PFIZER INC-2017505837

PATIENT
  Age: 76 Year
  Sex: Female
  Weight: 88.45 kg

DRUGS (3)
  1. ZYVOX [Suspect]
     Active Substance: LINEZOLID
     Dosage: 1 DF, UNK (ONE PILL)
     Dates: start: 20170912
  2. LINEZOLID. [Suspect]
     Active Substance: LINEZOLID
     Dosage: 600 MG, 2X/DAY
     Route: 048
     Dates: start: 20170911, end: 20170912
  3. ZYVOX [Suspect]
     Active Substance: LINEZOLID
     Dosage: 1 DF, UNK (ANOTHER ZYVOX PILL)
     Dates: start: 20170913

REACTIONS (11)
  - Fall [Unknown]
  - Back pain [Unknown]
  - Loss of personal independence in daily activities [Unknown]
  - Burning sensation [Recovered/Resolved]
  - Neuropathy peripheral [Recovered/Resolved]
  - Muscle strain [Unknown]
  - Ligament sprain [Unknown]
  - Condition aggravated [Unknown]
  - Wound [Unknown]
  - Paraesthesia [Unknown]
  - Humerus fracture [Unknown]

NARRATIVE: CASE EVENT DATE: 20170912
